FAERS Safety Report 8432798-X (Version None)
Quarter: 2012Q2

REPORT INFORMATION
  Report Type: 
  Country: None (occurrence: None)
  Receive Date: 20120613
  Receipt Date: 20120607
  Transmission Date: 20120825
  Serious: No
  Sender: FDA-Public Use
  Company Number: US-PFIZER INC-2012138061

PATIENT
  Sex: Female
  Weight: 75 kg

DRUGS (8)
  1. TELMA [Concomitant]
     Indication: BACK DISORDER
     Dosage: UNK, AS NEEDED.
  2. SAVELLA [Suspect]
     Indication: FIBROMYALGIA
  3. LYRICA [Suspect]
     Indication: BACK DISORDER
     Dosage: 75 MG, 3X/DAY
     Route: 048
     Dates: start: 20120301, end: 20120301
  4. LORTAB [Concomitant]
     Indication: BACK DISORDER
     Dosage: UNK, AS NEEDED
  5. SAVELLA [Suspect]
     Indication: BACK DISORDER
     Dosage: UNK
     Dates: start: 20120301, end: 20120301
  6. MELOXICAM [Concomitant]
     Indication: BACK DISORDER
     Dosage: 10 MG, DAILY
  7. LYRICA [Suspect]
     Indication: FIBROMYALGIA
     Dosage: 200 MG, 2X/DAY
     Dates: start: 20120401
  8. ACETAMINOPHEN [Concomitant]
     Indication: BACK DISORDER
     Dosage: UNK

REACTIONS (6)
  - DRUG INEFFECTIVE [None]
  - DYSPHONIA [None]
  - WEIGHT INCREASED [None]
  - BACK PAIN [None]
  - FEELING OF DESPAIR [None]
  - DEPRESSION [None]
